FAERS Safety Report 4611815-9 (Version None)
Quarter: 2005Q1

REPORT INFORMATION
  Report Type: 
  Country: None (occurrence: None)
  Receive Date: 20050317
  Receipt Date: 20041001
  Transmission Date: 20050727
  Serious: Yes (Life-Threatening, Hospitalization, Other)
  Sender: FDA-Public Use
  Company Number: DK-ABBOTT-04P-044-0276002-00

PATIENT
  Sex: Female

DRUGS (9)
  1. ABBOTICIN TABLETS [Suspect]
     Indication: LUNG INFECTION
     Route: 048
     Dates: start: 19990929, end: 19990930
  2. ABBOTICIN TABLETS [Suspect]
     Dosage: BEFORE IV ADMINISTRATION WAS STARTED
     Route: 048
  3. ABBOTICIN I.V. INJECTION [Suspect]
     Indication: LUNG INFECTION
     Route: 042
     Dates: start: 19990930, end: 19991009
  4. TAVERGYL [Interacting]
     Indication: INFECTION
     Dates: start: 19991009
  5. OXYGEN [Concomitant]
     Indication: LUNG INFILTRATION
     Dates: start: 19990929
  6. FUROSEMIDE [Concomitant]
     Indication: DRUG USE FOR UNKNOWN INDICATION
  7. POTASSIUM CHLORIDE [Concomitant]
     Indication: DRUG USE FOR UNKNOWN INDICATION
     Route: 048
  8. RAMIPRIL [Concomitant]
     Indication: DRUG USE FOR UNKNOWN INDICATION
  9. CLIMASTIN [Concomitant]
     Indication: DRUG USE FOR UNKNOWN INDICATION
     Dates: start: 19991009, end: 19991009

REACTIONS (11)
  - ABDOMINAL PAIN UPPER [None]
  - CARDIAC ARREST [None]
  - CARDIAC FAILURE [None]
  - CARDIOMEGALY [None]
  - CONDITION AGGRAVATED [None]
  - COUGH [None]
  - DRUG HYPERSENSITIVITY [None]
  - DRUG INTERACTION [None]
  - HEART VALVE INSUFFICIENCY [None]
  - MYOCARDITIS [None]
  - PULMONARY OEDEMA [None]
